FAERS Safety Report 24877740 (Version 2)
Quarter: 2025Q1

REPORT INFORMATION
  Report Type: Spontaneous
  Country: TW (occurrence: TW)
  Receive Date: 20250123
  Receipt Date: 20250214
  Transmission Date: 20250409
  Serious: Yes (Other)
  Sender: ACCORD
  Company Number: TW-Accord-465208

PATIENT
  Age: 79 Year
  Sex: Female

DRUGS (5)
  1. QUETIAPINE [Suspect]
     Active Substance: QUETIAPINE
     Indication: Dementia Alzheimer^s type
  2. OLANZAPINE [Suspect]
     Active Substance: OLANZAPINE
     Indication: Dementia Alzheimer^s type
  3. QUETIAPINE [Suspect]
     Active Substance: QUETIAPINE
     Indication: Dementia Alzheimer^s type
  4. OLANZAPINE [Suspect]
     Active Substance: OLANZAPINE
     Indication: Dementia Alzheimer^s type
  5. OLANZAPINE [Suspect]
     Active Substance: OLANZAPINE
     Indication: Dementia Alzheimer^s type

REACTIONS (2)
  - Pleurothotonus [Recovered/Resolved]
  - Disease recurrence [Recovered/Resolved]
